FAERS Safety Report 7262816-6 (Version None)
Quarter: 2011Q1

REPORT INFORMATION
  Report Type: 
  Country: None (occurrence: None)
  Receive Date: 20110130
  Receipt Date: 20100913
  Transmission Date: 20110831
  Serious: No
  Sender: FDA-Public Use
  Company Number: US-ABBOTT-10P-163-0670663-00

PATIENT
  Sex: Male

DRUGS (1)
  1. HUMIRA [Suspect]
     Indication: PSORIASIS
     Dosage: 800 MG DAY 1
     Route: 058
     Dates: start: 20100810

REACTIONS (3)
  - TENDERNESS [None]
  - ERYTHEMA [None]
  - MASS [None]
